FAERS Safety Report 4416367-4 (Version None)
Quarter: 2004Q3

REPORT INFORMATION
  Report Type: 
  Country: None (occurrence: None)
  Receive Date: 20040805
  Receipt Date: 20040804
  Transmission Date: 20050211
  Serious: Yes (Other)
  Sender: FDA-Public Use
  Company Number: US-GLAXOSMITHKLINE-A0520969A

PATIENT
  Age: 49 Year
  Sex: Female

DRUGS (2)
  1. WELLBUTRIN [Suspect]
     Indication: DEPRESSION
     Dosage: 100MG TWICE PER DAY
     Route: 048
     Dates: start: 20040419
  2. SYNTHROID [Concomitant]

REACTIONS (5)
  - BLADDER PAIN [None]
  - MICTURITION URGENCY [None]
  - NOCTURIA [None]
  - POLLAKIURIA [None]
  - URINARY INCONTINENCE [None]
